FAERS Safety Report 21564163 (Version 3)
Quarter: 2022Q4

REPORT INFORMATION
  Report Type: Spontaneous
  Country: US (occurrence: US)
  Receive Date: 20221108
  Receipt Date: 20221207
  Transmission Date: 20230113
  Serious: No
  Sender: FDA-Public Use
  Company Number: US-JNJFOC-20221044013

PATIENT
  Age: 74 Year
  Sex: Male

DRUGS (3)
  1. IMODIUM [Suspect]
     Active Substance: LOPERAMIDE HYDROCHLORIDE
     Indication: Diarrhoea
     Route: 048
     Dates: start: 2022
  2. TYVASO [Suspect]
     Active Substance: TREPROSTINIL
     Indication: Idiopathic pulmonary fibrosis
     Dosage: CONCENTRATION OF 0.6 MG/ML DELIVERED BY TYVASO INHALATION DEVICE (TD-300/A)
     Route: 065
     Dates: start: 20220615
  3. TYVASO [Suspect]
     Active Substance: TREPROSTINIL
     Dosage: CONCENTRATION OF 0.6 MG/ML DELIVERED BY TYVASO INHALATION DEVICE (TD-300/A); 24 UG (4 BREATHS)
     Route: 065
     Dates: start: 2022

REACTIONS (4)
  - Constipation [Recovered/Resolved]
  - Dizziness [Not Recovered/Not Resolved]
  - Panic attack [Not Recovered/Not Resolved]
  - Mastication disorder [Unknown]

NARRATIVE: CASE EVENT DATE: 20220101
